FAERS Safety Report 6410765-5 (Version None)
Quarter: 2009Q4

REPORT INFORMATION
  Report Type: 
  Country: None (occurrence: None)
  Receive Date: 20091020
  Receipt Date: 20091020
  Transmission Date: 20100525
  Serious: Yes (Life-Threatening, Other)
  Sender: FDA-Public Use
  Company Number: None

PATIENT
  Age: 5 Year
  Sex: Female
  Weight: 34.0198 kg

DRUGS (1)
  1. SINGULAIR [Suspect]
     Indication: SEASONAL ALLERGY
     Dosage: 1 TABLET DAILY
     Dates: start: 20090923, end: 20091006

REACTIONS (7)
  - ANXIETY [None]
  - BODY TEMPERATURE INCREASED [None]
  - FEAR [None]
  - PANIC ATTACK [None]
  - RASH [None]
  - SELF-INJURIOUS IDEATION [None]
  - SOMNOLENCE [None]
